FAERS Safety Report 9945780 (Version 1)
Quarter: 2014Q1

REPORT INFORMATION
  Report Type: Spontaneous
  Country: US (occurrence: US)
  Receive Date: 20140303
  Receipt Date: 20140303
  Transmission Date: 20141002
  Serious: Yes (Other)
  Sender: FDA-Public Use
  Company Number: US-AMGEN-USASP2013071591

PATIENT
  Age: 62 Year
  Sex: Female

DRUGS (9)
  1. ENBREL [Suspect]
     Indication: ANKYLOSING SPONDYLITIS
     Dosage: UNK
     Route: 065
  2. HUMIRA [Concomitant]
     Dosage: UNK
  3. ALEVE [Concomitant]
     Dosage: UNK
  4. B-COMPLEX                          /00003501/ [Concomitant]
     Dosage: UNK
  5. CLONAZEPAM [Concomitant]
     Dosage: UNK
  6. EVISTA [Concomitant]
     Dosage: UNK
  7. EVOXAC [Concomitant]
     Dosage: UNK
  8. FLAXSEED OIL [Concomitant]
     Dosage: UNK
  9. VITAMIN D                          /00107901/ [Concomitant]
     Dosage: UNK

REACTIONS (2)
  - Urinary tract infection [Recovered/Resolved]
  - Feeling abnormal [Unknown]
